FAERS Safety Report 5744683-2 (Version None)
Quarter: 2008Q2

REPORT INFORMATION
  Report Type: 
  Country: None (occurrence: None)
  Receive Date: 20080520
  Receipt Date: 20080513
  Transmission Date: 20081010
  Serious: No
  Sender: FDA-Public Use
  Company Number: US-BAXTER-2008BH004888

PATIENT
  Age: 46 Year
  Sex: Female
  Weight: 53 kg

DRUGS (6)
  1. HEPARIN SODIUM [Suspect]
     Indication: INTRAVENOUS CATHETER MANAGEMENT
     Dosage: DOSE UNIT:UNKNOWN
     Route: 042
     Dates: start: 20021007, end: 20080401
  2. REMICADE [Concomitant]
     Indication: RHEUMATOID ARTHRITIS
     Route: 042
     Dates: start: 20000118, end: 20021001
  3. REMICADE [Concomitant]
     Indication: CROHN'S DISEASE
     Route: 042
     Dates: start: 20021001
  4. OXYCONTIN [Concomitant]
     Indication: PAIN
     Dosage: DOSE UNIT:UNKNOWN
     Route: 065
  5. KLONOPIN [Concomitant]
     Indication: MENTAL DISORDER
     Dosage: DOSE UNIT:UNKNOWN
     Route: 065
  6. LORAZEPAM [Concomitant]
     Indication: MENTAL DISORDER
     Dosage: DOSE UNIT:UNKNOWN
     Route: 065

REACTIONS (5)
  - ABDOMINAL PAIN UPPER [None]
  - ANXIETY [None]
  - BONE PAIN [None]
  - BRAIN NEOPLASM [None]
  - DYSPNOEA [None]
